FAERS Safety Report 25364433 (Version 1)
Quarter: 2025Q2

REPORT INFORMATION
  Report Type: Spontaneous
  Country: IN (occurrence: IN)
  Receive Date: 20250527
  Receipt Date: 20250527
  Transmission Date: 20250716
  Serious: Yes (Death)
  Sender: PFIZER
  Company Number: IN-PFIZER INC-PV202400110812

PATIENT
  Age: 46 Year
  Sex: Female
  Weight: 58 kg

DRUGS (2)
  1. DACOMITINIB [Suspect]
     Active Substance: DACOMITINIB
     Dosage: 30 MG, 1X/DAY (1 HR BEFORE FOOD X 3 MONTHS)
     Route: 048
     Dates: start: 20231221
  2. RANITIDINE HYDROCHLORIDE [Concomitant]
     Active Substance: RANITIDINE HYDROCHLORIDE
     Indication: Hyperchlorhydria
     Dosage: 150 MG, 2X/DAY (TWICE DAILY AFTER FOOD)

REACTIONS (11)
  - Death [Fatal]
  - Blood pressure systolic increased [Unknown]
  - Heart rate increased [Unknown]
  - Weight increased [Unknown]
  - Red cell distribution width increased [Unknown]
  - Red blood cell nucleated morphology present [Unknown]
  - Vomiting [Unknown]
  - Nausea [Unknown]
  - Rash [Not Recovered/Not Resolved]
  - Diarrhoea [Recovered/Resolved]
  - Decreased appetite [Unknown]

NARRATIVE: CASE EVENT DATE: 20231221
